FAERS Safety Report 6358239-4 (Version None)
Quarter: 2009Q3

REPORT INFORMATION
  Report Type: 
  Country: None (occurrence: None)
  Receive Date: 20090916
  Receipt Date: 20090903
  Transmission Date: 20100115
  Serious: Yes (Death)
  Sender: FDA-Public Use
  Company Number: US-SANOFI-SYNTHELABO-A03200903938

PATIENT
  Age: 80 Year
  Sex: Female
  Weight: 45.4 kg

DRUGS (1)
  1. AMBIEN [Suspect]
     Indication: INSOMNIA
     Route: 048
     Dates: start: 20050301, end: 20050301

REACTIONS (2)
  - HIP FRACTURE [None]
  - INCOHERENT [None]
